FAERS Safety Report 4848179-1 (Version None)
Quarter: 2005Q4

REPORT INFORMATION
  Report Type: 
  Country: None (occurrence: None)
  Receive Date: 20051116
  Receipt Date: 20051007
  Transmission Date: 20060501
  Serious: Yes (Hospitalization)
  Sender: FDA-Public Use
  Company Number: PHEH2005US08853

PATIENT
  Age: 54 Year
  Sex: Female

DRUGS (2)
  1. GLEEVEC [Suspect]
     Indication: GASTROINTESTINAL STROMAL TUMOUR
     Dosage: 400 MG, QD, ORAL
     Route: 048
     Dates: start: 20050808
  2. NITROFURANTOIN [Concomitant]

REACTIONS (4)
  - ABDOMINAL PAIN [None]
  - NAUSEA [None]
  - PYREXIA [None]
  - VOMITING [None]
